FAERS Safety Report 14310701 (Version 1)
Quarter: 2017Q4

REPORT INFORMATION
  Report Type: Spontaneous
  Country: US (occurrence: US)
  Receive Date: 20171220
  Receipt Date: 20171220
  Transmission Date: 20180321
  Serious: No
  Sender: FDA-Public Use
  Company Number: US-BIOGEN-2017BI00497428

PATIENT
  Age: 38 Year
  Sex: Female

DRUGS (1)
  1. TYSABRI [Suspect]
     Active Substance: NATALIZUMAB
     Indication: MULTIPLE SCLEROSIS
     Route: 042
     Dates: start: 20130311, end: 20150609

REACTIONS (7)
  - Multiple sclerosis [Unknown]
  - Cognitive disorder [Unknown]
  - Drug dose omission [Unknown]
  - Fall [Recovered/Resolved]
  - Multiple sclerosis relapse [Unknown]
  - Loss of control of legs [Unknown]
  - Fatigue [Unknown]

NARRATIVE: CASE EVENT DATE: 201712
